FAERS Safety Report 9833508 (Version 2)
Quarter: 2014Q1

REPORT INFORMATION
  Report Type: Report from Study
  Country: DE (occurrence: DE)
  Receive Date: 20140122
  Receipt Date: 20140213
  Transmission Date: 20141002
  Serious: Yes (Hospitalization)
  Sender: FDA-Public Use
  Company Number: DE-ROCHE-1336561

PATIENT
  Sex: Female

DRUGS (6)
  1. RANIBIZUMAB [Suspect]
     Indication: VISUAL IMPAIRMENT
     Route: 050
     Dates: start: 20130114
  2. RANIBIZUMAB [Suspect]
     Indication: MACULAR OEDEMA
     Route: 050
     Dates: start: 20131213
  3. RANIBIZUMAB [Suspect]
     Indication: RETINAL VEIN OCCLUSION
  4. DELIX (GERMANY) [Concomitant]
     Indication: HYPERTENSION
     Route: 065
     Dates: start: 2011
  5. BISOPROLOL [Concomitant]
     Indication: HYPERTENSION
     Route: 065
     Dates: start: 20140104
  6. ALLOPURINOL [Concomitant]
     Indication: BLOOD URIC ACID INCREASED
     Route: 065

REACTIONS (3)
  - Pulmonary embolism [Recovering/Resolving]
  - Thrombosis [Recovered/Resolved]
  - Cystitis noninfective [Recovered/Resolved]
